FAERS Safety Report 8031758-0 (Version None)
Quarter: 2012Q1

REPORT INFORMATION
  Report Type: 
  Country: None (occurrence: None)
  Receive Date: 20120109
  Receipt Date: 20120103
  Transmission Date: 20120608
  Serious: Yes (Hospitalization, Other)
  Sender: FDA-Public Use
  Company Number: US-VERTEX PHARMACEUTICALS INC.-AE-2012-000305

PATIENT
  Sex: Male

DRUGS (3)
  1. RIBAVIRIN [Concomitant]
     Indication: HEPATITIS C
     Route: 048
     Dates: start: 20110922
  2. INCIVEK [Suspect]
     Indication: HEPATITIS C
     Route: 048
     Dates: start: 20110922, end: 20111214
  3. PEGASYS [Concomitant]
     Indication: HEPATITIS C
     Route: 058
     Dates: start: 20110922

REACTIONS (9)
  - IRRITABILITY [None]
  - CATARACT [None]
  - CHEST PAIN [None]
  - ANAL PRURITUS [None]
  - EYE DISORDER [None]
  - HAEMOGLOBIN DECREASED [None]
  - CORONARY ARTERY OCCLUSION [None]
  - PRURITUS [None]
  - RASH [None]
